FAERS Safety Report 9676124 (Version 3)
Quarter: 2014Q1

REPORT INFORMATION
  Report Type: Spontaneous
  Country: FR (occurrence: FR)
  Receive Date: 20131107
  Receipt Date: 20140211
  Transmission Date: 20141002
  Serious: Yes (Hospitalization)
  Sender: FDA-Public Use
  Company Number: FR-ASTRAZENECA-2013SE79120

PATIENT
  Age: 874 Month
  Sex: Female

DRUGS (9)
  1. BRILIQUE [Suspect]
     Indication: CARDIOVASCULAR EVENT PROPHYLAXIS
     Route: 048
     Dates: start: 201301, end: 20131002
  2. KARDEGIC [Concomitant]
     Indication: MYOCARDIAL INFARCTION
     Route: 048
     Dates: start: 2008
  3. NOVORAPID FLEXPEN [Concomitant]
     Indication: TYPE 2 DIABETES MELLITUS
     Dosage: 20 IU AT MORNING, 24 IU AT MIDDAY, 26 IU AT NIGHT
     Route: 058
     Dates: start: 1992
  4. LASILIX RETARD [Concomitant]
     Indication: HYPERTENSION
     Route: 048
     Dates: start: 2011, end: 201301
  5. LASILIX RETARD [Concomitant]
     Indication: HYPERTENSION
     Route: 048
     Dates: start: 201301
  6. APROVEL [Concomitant]
     Indication: HYPERTENSION
     Route: 048
     Dates: start: 2008
  7. CRESTOR [Concomitant]
     Indication: CARDIOVASCULAR EVENT PROPHYLAXIS
     Route: 048
     Dates: start: 2011
  8. CALDINE [Concomitant]
     Indication: HYPERTENSION
     Dosage: 2 MG AT MORNING 4 MG AT NIGHT, LONG LASTING TREATMENT
     Route: 048
  9. INEXIUM [Concomitant]
     Route: 048

REACTIONS (5)
  - Renal failure acute [Not Recovered/Not Resolved]
  - Calculus urinary [Recovered/Resolved]
  - Renal colic [Not Recovered/Not Resolved]
  - Diabetes mellitus inadequate control [Unknown]
  - Renal artery stenosis [Unknown]
